FAERS Safety Report 9246657 (Version 2)
Quarter: 2013Q2

REPORT INFORMATION
  Report Type: Spontaneous
  Country: US (occurrence: US)
  Receive Date: 20130422
  Receipt Date: 20130605
  Transmission Date: 20140414
  Serious: No
  Sender: FDA-Public Use
  Company Number: US-009507513-1304USA009388

PATIENT
  Age: 33 Year
  Sex: Female

DRUGS (3)
  1. INDOCIN I.V. [Suspect]
     Indication: PREMATURE LABOUR
     Dosage: UNK
  2. INDOCIN I.V. [Suspect]
     Indication: RENAL FAILURE CHRONIC
  3. INDOCIN I.V. [Suspect]
     Indication: DIALYSIS

REACTIONS (2)
  - Drug ineffective [Unknown]
  - Maternal exposure during pregnancy [Unknown]
